FAERS Safety Report 4780911-8 (Version None)
Quarter: 2005Q3

REPORT INFORMATION
  Report Type: 
  Country: None (occurrence: None)
  Receive Date: 20050927
  Receipt Date: 20050927
  Transmission Date: 20060218
  Serious: Yes (Hospitalization)
  Sender: FDA-Public Use
  Company Number: None

PATIENT
  Age: 54 Year
  Sex: Female
  Weight: 66.8 kg

DRUGS (2)
  1. GENTAMICIN [Suspect]
     Indication: CATHETER RELATED INFECTION
     Dosage: IV AND PO
     Route: 048
     Dates: start: 20050904, end: 20050913
  2. VANCOMYCIN [Suspect]
     Indication: CATHETER RELATED INFECTION
     Dosage: IV AND PO
     Route: 048
     Dates: start: 20050904, end: 20050913

REACTIONS (5)
  - DIALYSIS [None]
  - NAUSEA [None]
  - ORAL INTAKE REDUCED [None]
  - RENAL FAILURE ACUTE [None]
  - WEIGHT DECREASED [None]
